FAERS Safety Report 5425771-7 (Version None)
Quarter: 2007Q3

REPORT INFORMATION
  Report Type: 
  Country: None (occurrence: None)
  Receive Date: 20070824
  Receipt Date: 20070814
  Transmission Date: 20080115
  Serious: Yes (Hospitalization)
  Sender: FDA-Public Use
  Company Number: RS-ABBOTT-07P-303-0377759-00

PATIENT
  Age: 30 Year
  Sex: Male

DRUGS (5)
  1. VALPROIC ACID [Suspect]
     Indication: MYOCLONIC EPILEPSY
     Dosage: NOT REPORTED
  2. VALPROIC ACID [Suspect]
     Dosage: NOT REPORTED
  3. CARBAMAZEPINE [Suspect]
     Indication: MYOCLONIC EPILEPSY
     Dosage: NOT REPORTED
  4. PHENYTOIN [Suspect]
     Indication: MYOCLONIC EPILEPSY
     Dosage: NOT REPORTED
  5. PHENOBARBITAL TAB [Suspect]
     Indication: MYOCLONIC EPILEPSY
     Dosage: NOT REPORTED

REACTIONS (1)
  - DRUG INEFFECTIVE [None]
